FAERS Safety Report 7016751-9 (Version None)
Quarter: 2010Q3

REPORT INFORMATION
  Report Type: 
  Country: None (occurrence: None)
  Receive Date: 20100909
  Receipt Date: 20100714
  Transmission Date: 20110219
  Serious: No
  Sender: FDA-Public Use
  Company Number: 2010SP038909

PATIENT
  Age: 35 Year
  Sex: Male

DRUGS (4)
  1. SAPHRIS [Suspect]
     Indication: BIPOLAR DISORDER
     Dosage: 10 MG;BID,
  2. ABILIFY (CON.) [Concomitant]
  3. TEGRETOL (CON.) [Concomitant]
  4. CYMBALTA (CON.) [Concomitant]

REACTIONS (1)
  - SEDATION [None]
